FAERS Safety Report 7392624-7 (Version None)
Quarter: 2011Q2

REPORT INFORMATION
  Report Type: 
  Country: None (occurrence: None)
  Receive Date: 20110404
  Receipt Date: 20110329
  Transmission Date: 20111010
  Serious: Yes (Other)
  Sender: FDA-Public Use
  Company Number: BR-ABBOTT-11P-020-0715464-00

PATIENT
  Sex: Female
  Weight: 65 kg

DRUGS (5)
  1. FERROUS SULFATE TAB [Concomitant]
     Route: 048
     Dates: start: 20080101, end: 20110101
  2. HUMIRA [Suspect]
     Indication: RHEUMATOID ARTHRITIS
     Route: 058
     Dates: start: 20090104, end: 20100701
  3. METICORTEN [Concomitant]
     Indication: MUSCULOSKELETAL PAIN
     Route: 048
     Dates: start: 20060101
  4. PROPRANOLOL [Concomitant]
     Indication: HEART RATE ABNORMAL
     Route: 048
  5. FERROUS SULFATE TAB [Concomitant]
     Indication: ANAEMIA
     Route: 048
     Dates: start: 20110101

REACTIONS (8)
  - FACIAL PAIN [None]
  - VISUAL ACUITY REDUCED [None]
  - EYE SWELLING [None]
  - NEOPLASM [None]
  - VISION BLURRED [None]
  - ANAEMIA [None]
  - EYE INFLAMMATION [None]
  - OCULAR HYPERAEMIA [None]
